FAERS Safety Report 24240094 (Version 2)
Quarter: 2024Q3

REPORT INFORMATION
  Report Type: Spontaneous
  Country: FR (occurrence: FR)
  Receive Date: 20240822
  Receipt Date: 20240906
  Transmission Date: 20241017
  Serious: Yes (Other)
  Sender: MYLAN
  Company Number: FR-SANDOZ-SDZ2024FR069936

PATIENT
  Age: 46 Year
  Sex: Male
  Weight: 80 kg

DRUGS (3)
  1. AMLODIPINE [Suspect]
     Active Substance: AMLODIPINE BESYLATE
     Indication: Hypertension
     Dosage: 10 MG
     Route: 065
     Dates: start: 202104
  2. COVERAM [Suspect]
     Active Substance: AMLODIPINE\PERINDOPRIL
     Indication: Product used for unknown indication
     Dosage: UNK
     Route: 065
  3. PERINDOPRIL [Concomitant]
     Active Substance: PERINDOPRIL
     Indication: Hypertension
     Dosage: 10 MG
     Route: 065
     Dates: start: 202104

REACTIONS (2)
  - Periodontitis [Unknown]
  - Gingival hypertrophy [Unknown]

NARRATIVE: CASE EVENT DATE: 20220101
